FAERS Safety Report 25208696 (Version 1)
Quarter: 2025Q2

REPORT INFORMATION
  Report Type: Spontaneous
  Country: US (occurrence: US)
  Receive Date: 20250417
  Receipt Date: 20250417
  Transmission Date: 20250717
  Serious: No
  Sender: BRISTOL MYERS SQUIBB
  Company Number: US-BRISTOL-MYERS SQUIBB COMPANY-2025-054990

PATIENT
  Age: 76 Year
  Sex: Female
  Weight: 76.2 kg

DRUGS (2)
  1. ELIQUIS [Suspect]
     Active Substance: APIXABAN
     Indication: Atrial fibrillation
     Dates: start: 2023
  2. ATENOLOL [Concomitant]
     Active Substance: ATENOLOL
     Indication: Hypertension
     Route: 048
     Dates: start: 2015

REACTIONS (4)
  - Headache [Unknown]
  - Visual impairment [Unknown]
  - Depression [Unknown]
  - Dyspnoea [Unknown]

NARRATIVE: CASE EVENT DATE: 20230401
